FAERS Safety Report 15833350 (Version 1)
Quarter: 2018Q4

REPORT INFORMATION
  Report Type: Spontaneous
  Country: US (occurrence: US)
  Receive Date: 20181219
  Receipt Date: 20181219
  Transmission Date: 20190205
  Serious: Yes (Hospitalization)
  Sender: FDA-Public Use
  Company Number: None

PATIENT
  Age: 74 Year
  Sex: Male
  Weight: 103.9 kg

DRUGS (6)
  1. CYCLOPHOSPHAMIDE. [Suspect]
     Active Substance: CYCLOPHOSPHAMIDE
  2. VITAMIN D3 [Suspect]
     Active Substance: CHOLECALCIFEROL
     Indication: VITAMIN D DEFICIENCY
     Route: 048
     Dates: start: 20180705
  3. DOXORUBICIN [Suspect]
     Active Substance: DOXORUBICIN
  4. PREDNISOLONE. [Suspect]
     Active Substance: PREDNISOLONE
  5. RITUXIMAB. [Suspect]
     Active Substance: RITUXIMAB
  6. VINCRISTIN [Suspect]
     Active Substance: VINCRISTINE

REACTIONS (2)
  - Intestinal obstruction [None]
  - Hiatus hernia [None]

NARRATIVE: CASE EVENT DATE: 20181219
